FAERS Safety Report 16120285 (Version 4)
Quarter: 2020Q3

REPORT INFORMATION
  Report Type: Spontaneous
  Country: FR (occurrence: FR)
  Receive Date: 20190326
  Receipt Date: 20200904
  Transmission Date: 20201102
  Serious: Yes (Death, Life-Threatening, Other)
  Sender: FDA-Public Use
  Company Number: FR-JAZZ-2019-FR-004135

PATIENT

DRUGS (6)
  1. BUSULFAN. [Suspect]
     Active Substance: BUSULFAN
     Indication: BONE MARROW CONDITIONING REGIMEN
     Dosage: 70 MG, QD
     Route: 042
     Dates: start: 20190305, end: 20190305
  2. CYTARABINE. [Suspect]
     Active Substance: CYTARABINE
     Indication: BONE MARROW CONDITIONING REGIMEN
     Dosage: 2.82 G, QD
     Route: 042
     Dates: start: 20190226, end: 20190302
  3. DEFITELIO [Suspect]
     Active Substance: DEFIBROTIDE SODIUM
     Indication: PROPHYLAXIS
     Dosage: 1096 MG
     Route: 042
     Dates: start: 20190226, end: 20190305
  4. ONDANSETRON [Suspect]
     Active Substance: ONDANSETRON
     Indication: PROPHYLAXIS OF NAUSEA AND VOMITING
     Dosage: 16 MG, QD
     Route: 042
     Dates: start: 20190225, end: 20190304
  5. FLUDARABINE [Suspect]
     Active Substance: FLUDARABINE PHOSPHATE
     Indication: BONE MARROW CONDITIONING REGIMEN
     Dosage: 42.5 MG, QD
     Route: 042
     Dates: start: 20190226, end: 20190301
  6. AMSACRINE [Suspect]
     Active Substance: AMSACRINE
     Indication: BONE MARROW CONDITIONING REGIMEN
     Dosage: 141 MG, QD
     Route: 042
     Dates: start: 20190226, end: 20190301

REACTIONS (2)
  - Posterior reversible encephalopathy syndrome [Recovered/Resolved]
  - Acute myeloid leukaemia [Fatal]

NARRATIVE: CASE EVENT DATE: 20190305
